FAERS Safety Report 9759562 (Version 2)
Quarter: 2013Q4

REPORT INFORMATION
  Report Type: Spontaneous
  Country: None (occurrence: US)
  Receive Date: 20131216
  Receipt Date: 20131216
  Transmission Date: 20140711
  Serious: No
  Sender: FDA-Public Use
  Company Number: US-GILEAD-2010-0027218

PATIENT
  Age: 78 Year
  Sex: Female

DRUGS (11)
  1. LETAIRIS [Suspect]
     Indication: PULMONARY ARTERIAL HYPERTENSION
     Route: 048
  2. LASIX [Concomitant]
  3. AMLODIPINE [Concomitant]
  4. METOPROLOL ER [Concomitant]
  5. PRILOSEC [Concomitant]
  6. ALPRAZOLAM [Concomitant]
  7. PHENYTOIN [Concomitant]
  8. POTOBA [Concomitant]
  9. MVIT [Concomitant]
  10. MUPIROCIN [Concomitant]
  11. VICODIN [Concomitant]

REACTIONS (1)
  - Anaemia [Recovering/Resolving]
